FAERS Safety Report 14029716 (Version 11)
Quarter: 2018Q4

REPORT INFORMATION
  Report Type: Spontaneous
  Country: US (occurrence: US)
  Receive Date: 20171002
  Receipt Date: 20181101
  Transmission Date: 20190204
  Serious: No
  Sender: FDA-Public Use
  Company Number: US-JAZZ-2017-US-011272

PATIENT
  Sex: Male
  Weight: 129.2 kg

DRUGS (51)
  1. XYREM [Suspect]
     Active Substance: SODIUM OXYBATE
     Indication: SLEEP DISORDER
     Dosage: DOSE ADJUSTMENTS
     Route: 048
     Dates: start: 201412, end: 20170612
  2. PARACETAMOL [Concomitant]
     Active Substance: ACETAMINOPHEN
     Indication: INFLAMMATION
  3. TRAMADOL HCL [Concomitant]
     Active Substance: TRAMADOL HYDROCHLORIDE
  4. HYDROMORPHONE [Concomitant]
     Active Substance: HYDROMORPHONE
  5. BYETTA [Concomitant]
     Active Substance: EXENATIDE
  6. MELATONIN [Concomitant]
     Active Substance: MELATONIN
  7. MI-ACID [Concomitant]
  8. XYREM [Suspect]
     Active Substance: SODIUM OXYBATE
     Dosage: 9 G, QD
     Route: 048
     Dates: start: 2017
  9. CITALOPRAM [Concomitant]
     Active Substance: CITALOPRAM HYDROBROMIDE
     Indication: ANXIETY
  10. IBUPROFEN. [Concomitant]
     Active Substance: IBUPROFEN
     Indication: INFLAMMATION
  11. CYCLOBENZAPRINE. [Concomitant]
     Active Substance: CYCLOBENZAPRINE
     Indication: MUSCLE RELAXANT THERAPY
  12. VITAMIN D3 [Concomitant]
     Active Substance: CHOLECALCIFEROL
  13. CLONAZEPAM. [Concomitant]
     Active Substance: CLONAZEPAM
  14. OMEGA-3 FISH OIL [Concomitant]
     Active Substance: FISH OIL\OMEGA-3 FATTY ACIDS
  15. SELENIUM [Concomitant]
     Active Substance: SELENIUM
  16. XYREM [Suspect]
     Active Substance: SODIUM OXYBATE
     Dosage: 12 G, QD, FIRST DOSE
     Route: 048
  17. NOVOLOG [Concomitant]
     Active Substance: INSULIN ASPART
  18. DOXYCYCLINE. [Concomitant]
     Active Substance: DOXYCYCLINE
  19. ACETYLSALICYLIC ACID [Concomitant]
     Active Substance: ASPIRIN
  20. TESTOSTERONE CYPIONATE. [Concomitant]
     Active Substance: TESTOSTERONE CYPIONATE
  21. ECHINACEA PURPUREA [Concomitant]
     Active Substance: ECHINACEA PURPUREA
  22. XYREM [Suspect]
     Active Substance: SODIUM OXYBATE
     Dosage: 9 G, QD FIRST DOSE
     Route: 048
  23. METRONIDAZOLE. [Concomitant]
     Active Substance: METRONIDAZOLE
  24. LIDOCAINE HCL [Concomitant]
     Active Substance: LIDOCAINE HYDROCHLORIDE
  25. HYDROCHLOROTHIAZIDE. [Concomitant]
     Active Substance: HYDROCHLOROTHIAZIDE
  26. OMEPRAZOLE. [Concomitant]
     Active Substance: OMEPRAZOLE
  27. PSYLLIUM FIBRE [Concomitant]
  28. XYREM [Suspect]
     Active Substance: SODIUM OXYBATE
     Dosage: 4.5 G, QD SECOND DOSE
     Route: 048
  29. CITALOPRAM [Concomitant]
     Active Substance: CITALOPRAM HYDROBROMIDE
     Indication: SLEEP DISORDER
  30. HYDROXYZINE HCL [Concomitant]
     Active Substance: HYDROXYZINE HYDROCHLORIDE
  31. CITALOPRAM [Concomitant]
     Active Substance: CITALOPRAM HYDROBROMIDE
  32. MODAFINIL. [Concomitant]
     Active Substance: MODAFINIL
  33. ROZEREM [Concomitant]
     Active Substance: RAMELTEON
  34. VICODIN ES [Concomitant]
     Active Substance: ACETAMINOPHEN\HYDROCODONE BITARTRATE
  35. COENZYME Q10 [Concomitant]
     Active Substance: UBIDECARENONE
  36. SILYBUM MARIANUM [Concomitant]
     Active Substance: DIETARY SUPPLEMENT\HERBALS\MILK THISTLE
  37. XYREM [Suspect]
     Active Substance: SODIUM OXYBATE
     Indication: CIRCADIAN RHYTHM SLEEP DISORDER
     Dosage: 2.25G, BID
     Route: 048
     Dates: start: 201411, end: 201412
  38. GABAPENTIN. [Concomitant]
     Active Substance: GABAPENTIN
     Indication: DIABETIC FOOT
  39. LANTUS [Concomitant]
     Active Substance: INSULIN GLARGINE
     Indication: TYPE 2 DIABETES MELLITUS
  40. CONCERTA [Concomitant]
     Active Substance: METHYLPHENIDATE HYDROCHLORIDE
  41. SODIUM BICARBONATE. [Concomitant]
     Active Substance: SODIUM BICARBONATE
  42. HOLY BASIL [Concomitant]
  43. TEMAZEPAM. [Concomitant]
     Active Substance: TEMAZEPAM
  44. XYREM [Suspect]
     Active Substance: SODIUM OXYBATE
     Dosage: 4.5 G, BID
     Route: 048
  45. XYREM [Suspect]
     Active Substance: SODIUM OXYBATE
     Dosage: 6 G, QD, SECOND DOSE
     Route: 048
  46. TIZANIDINE. [Concomitant]
     Active Substance: TIZANIDINE
     Indication: MUSCLE RELAXANT THERAPY
  47. LIDOCAINE W/PRILOCAINE [Concomitant]
     Active Substance: LIDOCAINE\PRILOCAINE
  48. ALEVE [Concomitant]
     Active Substance: NAPROXEN SODIUM
  49. ALPHA LIPOIC ACID [Concomitant]
     Active Substance: .ALPHA.-LIPOIC ACID
  50. GLIPIZIDE. [Concomitant]
     Active Substance: GLIPIZIDE
  51. L-THREONINE [Concomitant]

REACTIONS (5)
  - Cognitive disorder [Unknown]
  - Drug ineffective [Unknown]
  - Treatment noncompliance [Unknown]
  - Insomnia [Unknown]
  - Feeling abnormal [Unknown]
